FAERS Safety Report 7208048-9 (Version None)
Quarter: 2011Q1

REPORT INFORMATION
  Report Type: 
  Country: None (occurrence: None)
  Receive Date: 20110104
  Receipt Date: 20101206
  Transmission Date: 20110831
  Serious: No
  Sender: FDA-Public Use
  Company Number: US-PFIZER INC-2010136664

PATIENT
  Sex: Female
  Weight: 72.6 kg

DRUGS (2)
  1. LYRICA [Suspect]
     Dosage: UNK
  2. LIPITOR [Suspect]
     Indication: BLOOD CHOLESTEROL INCREASED
     Dosage: 40 MG, 1X/DAY
     Route: 048

REACTIONS (3)
  - MUSCLE SPASMS [None]
  - FEELING ABNORMAL [None]
  - BLOOD CHOLESTEROL INCREASED [None]
